FAERS Safety Report 6835249-1 (Version None)
Quarter: 2010Q3

REPORT INFORMATION
  Report Type: 
  Country: None (occurrence: None)
  Receive Date: 20100713
  Receipt Date: 20100505
  Transmission Date: 20110219
  Serious: Yes (Hospitalization, Other)
  Sender: FDA-Public Use
  Company Number: DE-BAYER-201023965GPV

PATIENT
  Age: 63 Year
  Sex: Female

DRUGS (3)
  1. MABCAMPATH [Suspect]
     Indication: B-CELL SMALL LYMPHOCYTIC LYMPHOMA STAGE IV
     Dosage: INTRAVENOUS AND SUBCUTANEOUS APPLICATION
     Dates: start: 20091001, end: 20100101
  2. COTRIM [Concomitant]
     Indication: INFECTION PROPHYLAXIS
  3. FAMCICLOVIR [Concomitant]
     Indication: INFECTION PROPHYLAXIS

REACTIONS (6)
  - BONE MARROW FAILURE [None]
  - BONE MARROW NECROSIS [None]
  - BONE PAIN [None]
  - FEBRILE INFECTION [None]
  - NEUTROPENIA [None]
  - PANCYTOPENIA [None]
